FAERS Safety Report 21896261 (Version 1)
Quarter: 2023Q1

REPORT INFORMATION
  Report Type: Spontaneous
  Country: DE (occurrence: DE)
  Receive Date: 20230123
  Receipt Date: 20230123
  Transmission Date: 20230418
  Serious: No
  Sender: FDA-Public Use
  Company Number: DE-ALKEM LABORATORIES LIMITED-DE-ALKEM-2022-10906

PATIENT
  Age: 30 Year
  Sex: Female
  Weight: 79 kg

DRUGS (8)
  1. FINGOLIMOD [Suspect]
     Active Substance: FINGOLIMOD
     Indication: Relapsing-remitting multiple sclerosis
     Dosage: 0.5 MILLIGRAM
     Route: 048
     Dates: start: 20200824
  2. COMIRNATY [Concomitant]
     Active Substance: TOZINAMERAN
     Indication: COVID-19 immunisation
     Dosage: 0.3 MILLILITER, 1 TOTAL
     Route: 030
     Dates: start: 20210508, end: 20210508
  3. COMIRNATY [Concomitant]
     Active Substance: TOZINAMERAN
     Dosage: 0.3 MILLILITER, 1 TOTAL
     Route: 030
     Dates: start: 20210618, end: 20210618
  4. OCREVUS [Concomitant]
     Active Substance: OCRELIZUMAB
     Indication: Multiple sclerosis
     Dosage: 600 MILLIGRAM
     Route: 042
     Dates: start: 20220504
  5. CORTISONE [Concomitant]
     Active Substance: CORTISONE
     Indication: Multiple sclerosis relapse
     Dosage: 1 GRAM, 5 TOTAL
     Route: 042
     Dates: start: 20220428, end: 20220502
  6. FSME-IMMUN [Concomitant]
     Active Substance: TICK-BORNE ENCEPHALITIS VACCINE
     Indication: Prophylaxis
     Dosage: UNK, 1 TOTAL
     Route: 030
     Dates: start: 20220321, end: 20220321
  7. Meningiococcal vaccine [Concomitant]
     Indication: Prophylaxis
     Dosage: UNK, 1 TOTAL
     Route: 030
     Dates: start: 20220321, end: 20220321
  8. PNEUMOCOCCAL VACCINE POLYVALENT NOS [Concomitant]
     Active Substance: PNEUMOCOCCAL VACCINE POLYVALENT
     Indication: Prophylaxis
     Dosage: UNK,1 TOTAL
     Route: 030
     Dates: start: 20220321, end: 20220321

REACTIONS (2)
  - Urinary tract infection [Recovered/Resolved]
  - Fatigue [Recovered/Resolved]

NARRATIVE: CASE EVENT DATE: 20220427
